FAERS Safety Report 9495238 (Version 1)
Quarter: 2013Q3

REPORT INFORMATION
  Report Type: Report from Study
  Country: CO (occurrence: CO)
  Receive Date: 20130903
  Receipt Date: 20130903
  Transmission Date: 20140515
  Serious: Yes (Hospitalization)
  Sender: FDA-Public Use
  Company Number: CO-SANOFI-AVENTIS-2013SA086699

PATIENT
  Age: 65 Year
  Sex: Female

DRUGS (5)
  1. LANTUS [Suspect]
     Indication: DIABETES MELLITUS
     Dosage: DOSE:18 UNIT(S)
     Route: 058
     Dates: start: 2011
  2. THEOPHYLLINE [Suspect]
     Indication: CHRONIC OBSTRUCTIVE PULMONARY DISEASE
     Route: 048
  3. OMEPRAZOLE [Concomitant]
     Route: 048
  4. FUROSEMIDE [Concomitant]
     Indication: RENAL FAILURE CHRONIC
     Route: 048
  5. SPIRONOLACTONE [Concomitant]
     Indication: RENAL FAILURE CHRONIC
     Route: 048

REACTIONS (2)
  - Chronic obstructive pulmonary disease [Recovering/Resolving]
  - Hyperglycaemia [Recovering/Resolving]
